FAERS Safety Report 24859890 (Version 1)
Quarter: 2025Q1

REPORT INFORMATION
  Report Type: Spontaneous
  Country: AU (occurrence: AU)
  Receive Date: 20250119
  Receipt Date: 20250119
  Transmission Date: 20250408
  Serious: Yes (Death)
  Sender: JOHNSON AND JOHNSON
  Company Number: AU-JNJFOC-20250115382

PATIENT
  Age: 84 Year
  Sex: Male

DRUGS (4)
  1. RISPERDAL [Suspect]
     Active Substance: RISPERIDONE
     Indication: Aggression
     Route: 065
  2. RISPERDAL [Suspect]
     Active Substance: RISPERIDONE
     Indication: Dementia
  3. QUETIAPINE [Suspect]
     Active Substance: QUETIAPINE
     Indication: Aggression
     Route: 065
  4. QUETIAPINE [Suspect]
     Active Substance: QUETIAPINE
     Indication: Dementia

REACTIONS (5)
  - Constipation [Fatal]
  - Dysphagia [Fatal]
  - Fluid intake reduced [Fatal]
  - Food refusal [Fatal]
  - Mobility decreased [Fatal]
